FAERS Safety Report 6711504-0 (Version None)
Quarter: 2010Q2

REPORT INFORMATION
  Report Type: 
  Country: None (occurrence: None)
  Receive Date: 20100505
  Receipt Date: 20100423
  Transmission Date: 20101027
  Serious: Yes (Hospitalization)
  Sender: FDA-Public Use
  Company Number: GB-SANOFI-AVENTIS-2010SA023989

PATIENT
  Age: 35 Year
  Sex: Female

DRUGS (2)
  1. TAXOTERE [Suspect]
  2. HERCEPTIN [Concomitant]
     Indication: BREAST CANCER

REACTIONS (1)
  - CEREBROVASCULAR ACCIDENT [None]
